FAERS Safety Report 6755835-7 (Version None)
Quarter: 2010Q2

REPORT INFORMATION
  Report Type: 
  Country: None (occurrence: None)
  Receive Date: 20100604
  Receipt Date: 20100524
  Transmission Date: 20101027
  Serious: Yes (Hospitalization)
  Sender: FDA-Public Use
  Company Number: NL-JNJFOC-20100510649

PATIENT
  Age: 34 Year
  Sex: Female

DRUGS (2)
  1. PARACETAMOL [Suspect]
  2. PARACETAMOL [Suspect]
     Indication: DRUG USE FOR UNKNOWN INDICATION

REACTIONS (5)
  - CONJUNCTIVITIS [None]
  - STAPHYLOCOCCAL INFECTION [None]
  - STOMATITIS [None]
  - TOXIC EPIDERMAL NECROLYSIS [None]
  - VULVITIS [None]
